FAERS Safety Report 4911761-7 (Version None)
Quarter: 2006Q1

REPORT INFORMATION
  Report Type: 
  Country: None (occurrence: None)
  Receive Date: 20060213
  Receipt Date: 20060213
  Transmission Date: 20060701
  Serious: Yes (Hospitalization)
  Sender: FDA-Public Use
  Company Number: None

PATIENT
  Age: 59 Year
  Sex: Male
  Weight: 67.1324 kg

DRUGS (2)
  1. DIGOXIN [Suspect]
     Indication: ATRIAL FIBRILLATION
     Dosage: 0.25 MG  DAILY  PO
     Route: 048
     Dates: start: 20051212, end: 20060113
  2. DIGOXIN [Suspect]
     Indication: ATRIAL FLUTTER
     Dosage: 0.25 MG  DAILY  PO
     Route: 048
     Dates: start: 20051212, end: 20060113

REACTIONS (8)
  - COUGH [None]
  - DIZZINESS [None]
  - FATIGUE [None]
  - HEART RATE DECREASED [None]
  - MUSCULOSKELETAL PAIN [None]
  - NAUSEA [None]
  - THERAPEUTIC AGENT TOXICITY [None]
  - VISION BLURRED [None]
